FAERS Safety Report 7162955-4 (Version None)
Quarter: 2010Q4

REPORT INFORMATION
  Report Type: 
  Country: None (occurrence: None)
  Receive Date: 20101215
  Receipt Date: 20100201
  Transmission Date: 20110411
  Serious: Yes (Hospitalization)
  Sender: FDA-Public Use
  Company Number: FR-PFIZER INC-2010012841

PATIENT
  Age: 69 Year
  Sex: Female

DRUGS (15)
  1. LYRICA [Suspect]
     Indication: PAIN
     Dosage: 100 MG, 3X/DAY
     Dates: start: 20090611, end: 20090620
  2. LYRICA [Suspect]
     Dosage: UNK
     Route: 048
     Dates: start: 20090101
  3. DANTRIUM [Concomitant]
     Indication: MYALGIA
     Route: 048
  4. BACLOFEN [Concomitant]
     Indication: MUSCLE SPASTICITY
     Route: 048
  5. LAROXYL [Concomitant]
     Indication: NEURALGIA
     Route: 048
  6. LEVOTHYROX [Concomitant]
     Indication: HYPOTHYROIDISM
     Route: 048
  7. DIFFU K [Concomitant]
     Indication: HYPOKALAEMIA
     Route: 048
  8. PREVISCAN [Concomitant]
     Dosage: 20 MG
     Route: 048
  9. NEXIUM [Concomitant]
     Indication: GASTROOESOPHAGEAL REFLUX DISEASE
     Route: 048
  10. CRESTOR [Concomitant]
     Indication: HYPERCHOLESTEROLAEMIA
     Route: 048
  11. IMOVANE [Concomitant]
     Indication: INSOMNIA
     Route: 048
  12. MEDIATOR [Concomitant]
     Dosage: 150 MG
     Route: 048
  13. STRONTIUM RANELATE [Concomitant]
     Indication: OSTEOPOROSIS
     Dosage: 2 G
     Route: 048
  14. BECOTIDE [Concomitant]
     Route: 055
  15. AMLODIPINE/VALSARTAN [Concomitant]
     Indication: HYPERTENSION
     Route: 048

REACTIONS (2)
  - LOSS OF CONSCIOUSNESS [None]
  - MALAISE [None]
